FAERS Safety Report 6553786-4 (Version None)
Quarter: 2010Q1

REPORT INFORMATION
  Report Type: 
  Country: None (occurrence: None)
  Receive Date: 20100125
  Receipt Date: 20100125
  Transmission Date: 20100710
  Serious: Yes (Hospitalization)
  Sender: FDA-Public Use
  Company Number: None

PATIENT
  Sex: Female
  Weight: 48.5349 kg

DRUGS (1)
  1. AGGRENOX [Suspect]

REACTIONS (4)
  - DEAFNESS UNILATERAL [None]
  - ECONOMIC PROBLEM [None]
  - FEELING ABNORMAL [None]
  - HEADACHE [None]
